FAERS Safety Report 7802044-6 (Version None)
Quarter: 2011Q4

REPORT INFORMATION
  Report Type: 
  Country: None (occurrence: None)
  Receive Date: 20111007
  Receipt Date: 20110930
  Transmission Date: 20120403
  Serious: Yes (Death)
  Sender: FDA-Public Use
  Company Number: US-PFIZER INC-2011153070

PATIENT
  Sex: Male

DRUGS (12)
  1. ASPIRIN [Concomitant]
     Dosage: 81 MG, 1X/DAY
     Route: 048
  2. ATENOLOL [Concomitant]
     Dosage: 50 MG, 1X/DAY
     Route: 048
  3. ZOCOR [Concomitant]
     Dosage: 10 MG, 1X/DAY
  4. MAGNESIUM OXIDE [Concomitant]
     Dosage: 800 MG, 2X/DAY
  5. RAPAMUNE [Suspect]
     Indication: PROPHYLAXIS AGAINST TRANSPLANT REJECTION
     Dosage: 2 MG, 1X/DAY
     Route: 048
     Dates: start: 20101208
  6. CLONIDINE [Concomitant]
     Dosage: 0.3 MG, 3X/DAY
  7. LANTUS [Concomitant]
     Dosage: UNK
  8. HUMALOG [Concomitant]
     Dosage: UNK
  9. PREDNISONE [Concomitant]
     Dosage: 5 MG, 1X/DAY
  10. CELEXA [Concomitant]
     Dosage: 20 MG, 1X/DAY
     Route: 048
  11. ALLOPURINOL [Concomitant]
     Dosage: 100 MG, 1X/DAY
     Route: 048
  12. DOXYCYCLINE [Concomitant]
     Dosage: 100 MG, 1X/DAY

REACTIONS (1)
  - CARDIAC ARREST [None]
